FAERS Safety Report 8421940-2 (Version None)
Quarter: 2012Q2

REPORT INFORMATION
  Report Type: 
  Country: None (occurrence: None)
  Receive Date: 20120608
  Receipt Date: 20120601
  Transmission Date: 20120825
  Serious: Yes (Other)
  Sender: FDA-Public Use
  Company Number: PHHY2012US047103

PATIENT
  Age: 28 Year
  Sex: Female

DRUGS (2)
  1. MISOPROSTOL [Suspect]
     Indication: ABORTION INDUCED
     Dosage: 400 UG, UNK
     Route: 048
  2. METHOTREXATE [Suspect]
     Indication: ABORTION INDUCED
     Dosage: 50 MG/M2, UNK
     Route: 030

REACTIONS (4)
  - MATERNAL EXPOSURE DURING PREGNANCY [None]
  - OLIGOHYDRAMNIOS [None]
  - PELVIC PAIN [None]
  - INDUCED ABORTION FAILED [None]
